FAERS Safety Report 6752972-8 (Version None)
Quarter: 2010Q2

REPORT INFORMATION
  Report Type: 
  Country: None (occurrence: None)
  Receive Date: 20100602
  Receipt Date: 20100602
  Transmission Date: 20101027
  Serious: Yes (Hospitalization, Other)
  Sender: FDA-Public Use
  Company Number: None

PATIENT
  Sex: Male
  Weight: 95.2554 kg

DRUGS (5)
  1. SEROQUEL [Suspect]
     Indication: DEPRESSION
     Dosage: 300MG 1 AT NIGHT PER DAY
  2. PHENYTOIN [Concomitant]
  3. LEVETIRACETAM [Concomitant]
  4. PRAVASTATIN [Concomitant]
  5. PREVACID [Concomitant]

REACTIONS (1)
  - CONVULSION [None]
